FAERS Safety Report 16226748 (Version 4)
Quarter: 2020Q3

REPORT INFORMATION
  Report Type: Spontaneous
  Country: US (occurrence: US)
  Receive Date: 20190423
  Receipt Date: 20200806
  Transmission Date: 20201102
  Serious: Yes (Disabling)
  Sender: FDA-Public Use
  Company Number: US-SA-2019SA110152

PATIENT

DRUGS (17)
  1. KEVZARA [Suspect]
     Active Substance: SARILUMAB
     Dosage: 200 MG, QOW
     Route: 058
     Dates: start: 20190402
  2. LEVOTHYROXIN [Concomitant]
     Active Substance: LEVOTHYROXINE
  3. LOSARTAN POTASSSIUM [Concomitant]
     Active Substance: LOSARTAN POTASSIUM
  4. CARVEDILOL. [Concomitant]
     Active Substance: CARVEDILOL
     Dosage: 25 MG
  5. ASPIRIN [ACETYLSALICYLIC ACID] [Concomitant]
     Active Substance: ASPIRIN
  6. ATORVASTATIN [Concomitant]
     Active Substance: ATORVASTATIN
     Dosage: 80 MG
  7. FOLIC ACID. [Concomitant]
     Active Substance: FOLIC ACID
  8. FUROSEMIDE. [Concomitant]
     Active Substance: FUROSEMIDE
  9. GLIPIZIDE. [Concomitant]
     Active Substance: GLIPIZIDE
  10. PREDNISONE. [Concomitant]
     Active Substance: PREDNISONE
  11. TRAZODONE HYDROCHLORIDE. [Concomitant]
     Active Substance: TRAZODONE HYDROCHLORIDE
  12. METHOTREXATE. [Concomitant]
     Active Substance: METHOTREXATE
  13. TAMSULOSIN HCL [Concomitant]
     Active Substance: TAMSULOSIN HYDROCHLORIDE
     Dosage: 0.4 MG
  14. GABAPENTIN. [Concomitant]
     Active Substance: GABAPENTIN
  15. PREDNISONE. [Concomitant]
     Active Substance: PREDNISONE
     Dosage: UNK
  16. IBUPROFEN. [Concomitant]
     Active Substance: IBUPROFEN
  17. XELJANZ [Concomitant]
     Active Substance: TOFACITINIB CITRATE

REACTIONS (6)
  - Drug ineffective [Not Recovered/Not Resolved]
  - Pain [Not Recovered/Not Resolved]
  - Loss of personal independence in daily activities [Not Recovered/Not Resolved]
  - Constipation [Not Recovered/Not Resolved]
  - Injection site pain [Not Recovered/Not Resolved]
  - Injection site bruising [Not Recovered/Not Resolved]

NARRATIVE: CASE EVENT DATE: 2019
